FAERS Safety Report 9976893 (Version 1)
Quarter: 2014Q1

REPORT INFORMATION
  Report Type: Report from Study
  Country: US (occurrence: US)
  Receive Date: 20140306
  Receipt Date: 20140306
  Transmission Date: 20141002
  Serious: No
  Sender: FDA-Public Use
  Company Number: US-ABBVIE-13P-163-1166887-00

PATIENT
  Age: 47 Year
  Sex: Female

DRUGS (12)
  1. HUMIRA [Suspect]
     Indication: CROHN^S DISEASE
     Dates: start: 20131011, end: 20131011
  2. HUMIRA [Suspect]
     Dates: start: 20131025, end: 20131025
  3. HUMIRA [Suspect]
  4. IMURAN [Concomitant]
     Indication: CROHN^S DISEASE
  5. SERTRALINE [Concomitant]
     Indication: DEPRESSION
  6. SERTRALINE [Concomitant]
     Indication: ANXIETY
  7. AMLODIPINE BESYLATE [Concomitant]
     Indication: HYPERTENSION
  8. LISINOPRIL [Concomitant]
     Indication: HYPERTENSION
  9. VIT B12 [Concomitant]
     Indication: PRODUCT USED FOR UNKNOWN INDICATION
     Dosage: VIT B12 SHOT
  10. FOLIC ACID [Concomitant]
     Indication: CROHN^S DISEASE
  11. FOLIC ACID [Concomitant]
     Indication: VITAMIN SUPPLEMENTATION
  12. LORAZEPAM [Concomitant]
     Indication: ANXIETY

REACTIONS (1)
  - Injection site pain [Recovered/Resolved]
